FAERS Safety Report 6400582-4 (Version None)
Quarter: 2009Q4

REPORT INFORMATION
  Report Type: 
  Country: None (occurrence: None)
  Receive Date: 20091014
  Receipt Date: 20091002
  Transmission Date: 20100525
  Serious: Yes (Other)
  Sender: FDA-Public Use
  Company Number: PHHY2009BR42743

PATIENT
  Sex: Female

DRUGS (2)
  1. DIOVAN TRIPLE [Suspect]
     Indication: HYPERTENSION
     Dosage: 1 TABLET (160/12.5/5 MG) DAILY
     Route: 048
  2. TAPAZOL [Concomitant]
     Indication: HYPERTHYROIDISM
     Dosage: 10 MG, QD

REACTIONS (2)
  - EPISTAXIS [None]
  - OEDEMA PERIPHERAL [None]
